FAERS Safety Report 13644821 (Version 1)
Quarter: 2017Q2

REPORT INFORMATION
  Report Type: Spontaneous
  Country: US (occurrence: US)
  Receive Date: 20170612
  Receipt Date: 20170612
  Transmission Date: 20170830
  Serious: No
  Sender: FDA-Public Use
  Company Number: US-ROCHE-1369328

PATIENT
  Sex: Male

DRUGS (1)
  1. XELODA [Suspect]
     Active Substance: CAPECITABINE
     Indication: COLON CANCER
     Dosage: DOSE: 3X500 MG, 2 WEEKS ON/1 WEEK OFF
     Route: 065
     Dates: start: 20140129

REACTIONS (1)
  - Nausea [Recovered/Resolved]
